FAERS Safety Report 11451870 (Version 1)
Quarter: 2015Q3

REPORT INFORMATION
  Report Type: Spontaneous
  Country: IT (occurrence: IT)
  Receive Date: 20150903
  Receipt Date: 20150903
  Transmission Date: 20151125
  Serious: Yes (Hospitalization)
  Sender: FDA-Public Use
  Company Number: IT-ACTAVIS-2015-18401

PATIENT
  Age: 22 Year
  Sex: Female

DRUGS (6)
  1. PANTOPRAZOLE SODIUM. [Suspect]
     Active Substance: PANTOPRAZOLE SODIUM
     Indication: DRUG ABUSE
     Dosage: UNK, UNKNOWN
     Route: 065
     Dates: start: 20150613, end: 20150613
  2. BRUFEN                             /00109201/ [Suspect]
     Active Substance: IBUPROFEN
     Indication: DRUG ABUSE
     Dosage: 3 DF, TOTAL
     Route: 048
     Dates: start: 20150613, end: 20150613
  3. TACHICAF [Suspect]
     Active Substance: ACETAMINOPHEN\CAFFEINE
     Indication: DRUG ABUSE
     Dosage: 3 DF, TOTAL
     Route: 048
     Dates: start: 20150613, end: 20150613
  4. XANAX [Suspect]
     Active Substance: ALPRAZOLAM
     Indication: DRUG ABUSE
     Dosage: UNK, UNKNOWN
     Route: 065
     Dates: start: 20150613, end: 20150613
  5. FLUIBRON [Suspect]
     Active Substance: AMBROXOL HYDROCHLORIDE
     Indication: DRUG ABUSE
     Dosage: 3 DF, TOTAL
     Route: 048
     Dates: start: 20150613, end: 20150613
  6. CLENIL                             /00212602/ [Suspect]
     Active Substance: BECLOMETHASONE DIPROPIONATE
     Indication: DRUG ABUSE
     Dosage: 3 DF, TOTAL
     Route: 048
     Dates: start: 20150613, end: 20150613

REACTIONS (4)
  - Sopor [Recovering/Resolving]
  - Drug abuse [Recovering/Resolving]
  - Vomiting [Recovering/Resolving]
  - Intentional self-injury [Recovering/Resolving]

NARRATIVE: CASE EVENT DATE: 20150613
